FAERS Safety Report 9994669 (Version 1)
Quarter: 2014Q1

REPORT INFORMATION
  Report Type: Spontaneous
  Country: US (occurrence: None)
  Receive Date: 20140306
  Receipt Date: 20140306
  Transmission Date: 20141002
  Serious: Yes (Other)
  Sender: FDA-Public Use
  Company Number: 001678796A

PATIENT
  Age: 64 Year
  Sex: Female

DRUGS (3)
  1. X-OUT WASH-IN TREATMENT [Suspect]
     Indication: ACNE
     Dosage: DERMAL
     Dates: start: 20140207
  2. DIOVAN [Concomitant]
  3. ADVAIR [Concomitant]

REACTIONS (3)
  - Lip swelling [None]
  - Rash [None]
  - Dyspnoea [None]
